FAERS Safety Report 12571455 (Version 2)
Quarter: 2016Q3

REPORT INFORMATION
  Report Type: Spontaneous
  Country: KR (occurrence: KR)
  Receive Date: 20160719
  Receipt Date: 20160801
  Transmission Date: 20161109
  Serious: Yes (Other)
  Sender: FDA-Public Use
  Company Number: KR-ALLERGAN-1663236US

PATIENT
  Age: 6 Decade
  Sex: Male

DRUGS (1)
  1. OZURDEX [Suspect]
     Active Substance: DEXAMETHASONE
     Indication: MACULAR OEDEMA
     Dosage: 0.7 MG, SINGLE
     Route: 031
     Dates: start: 20160708, end: 20160708

REACTIONS (4)
  - Corneal oedema [Unknown]
  - Visual acuity reduced [Unknown]
  - Device dislocation [Unknown]
  - Corneal opacity [Unknown]

NARRATIVE: CASE EVENT DATE: 20160711
